FAERS Safety Report 16896644 (Version 14)
Quarter: 2020Q1

REPORT INFORMATION
  Report Type: Report from Study
  Country: US (occurrence: US)
  Receive Date: 20191008
  Receipt Date: 20200203
  Transmission Date: 20200409
  Serious: Yes (Hospitalization, Other)
  Sender: FDA-Public Use
  Company Number: US-ACTELION-A-NJ2019-194901

PATIENT
  Age: 70 Year
  Sex: Female
  Weight: 70.3 kg

DRUGS (6)
  1. REMODULIN [Suspect]
     Active Substance: TREPROSTINIL
     Dosage: UNK
     Route: 042
  2. REMODULIN [Suspect]
     Active Substance: TREPROSTINIL
     Dosage: 30 NG/KG, PER MIN
     Route: 058
  3. SPIRIVA [Concomitant]
     Active Substance: TIOTROPIUM BROMIDE MONOHYDRATE
  4. REMODULIN [Suspect]
     Active Substance: TREPROSTINIL
     Dosage: 15 NG/KG, PER MIN
     Route: 058
  5. OPSUMIT [Suspect]
     Active Substance: MACITENTAN
     Indication: PULMONARY ARTERIAL HYPERTENSION
     Dosage: 10 MG, QD
     Route: 048
     Dates: start: 20190810
  6. REMODULIN [Suspect]
     Active Substance: TREPROSTINIL
     Indication: PRODUCT USED FOR UNKNOWN INDICATION
     Dosage: 10 NG/KG, PER MIN
     Route: 051

REACTIONS (29)
  - Sleep disorder [Not Recovered/Not Resolved]
  - Acne [Recovering/Resolving]
  - Paraesthesia [Unknown]
  - Hospitalisation [Unknown]
  - Decreased appetite [Unknown]
  - Contusion [Unknown]
  - Aspiration [Recovered/Resolved]
  - Restlessness [Not Recovered/Not Resolved]
  - Infusion site warmth [Unknown]
  - Infusion site swelling [Unknown]
  - Dry mouth [Unknown]
  - Pneumothorax spontaneous [Unknown]
  - Urine output decreased [Unknown]
  - Diarrhoea [Not Recovered/Not Resolved]
  - Pruritus [Not Recovered/Not Resolved]
  - Device dislocation [Not Recovered/Not Resolved]
  - Abdominal pain upper [Unknown]
  - Catheter site hypoaesthesia [Unknown]
  - Infusion site pain [Not Recovered/Not Resolved]
  - Therapy change [Unknown]
  - Pain in jaw [Unknown]
  - Peripheral swelling [Unknown]
  - Headache [Unknown]
  - Abdominal pain [Unknown]
  - Dizziness [Unknown]
  - Fatigue [Unknown]
  - Anxiety [Not Recovered/Not Resolved]
  - Catheter site nodule [Unknown]
  - Product dose omission [Not Recovered/Not Resolved]

NARRATIVE: CASE EVENT DATE: 20190821
